FAERS Safety Report 19962218 (Version 1)
Quarter: 2021Q4

REPORT INFORMATION
  Report Type: Spontaneous
  Country: US (occurrence: US)
  Receive Date: 20211018
  Receipt Date: 20211018
  Transmission Date: 20220304
  Serious: No
  Sender: FDA-Public Use
  Company Number: US-BIOVITRUM-2021US9195

PATIENT
  Sex: Male

DRUGS (14)
  1. SYNAGIS [Suspect]
     Active Substance: PALIVIZUMAB
     Indication: Antiviral prophylaxis
     Route: 030
     Dates: start: 20210917
  2. SIMETHICONE (DIMETHICONE) [Concomitant]
     Active Substance: DIMETHICONE
  3. BACLOFEN [Concomitant]
     Active Substance: BACLOFEN
  4. POLY-VI-SOL/IRON [Concomitant]
  5. AQEOUS VIT D [Concomitant]
  6. LEVALBUTEROL [Concomitant]
     Active Substance: LEVALBUTEROL
  7. LEVETIRACETAM [Concomitant]
     Active Substance: LEVETIRACETAM
  8. SULFATRIM [Concomitant]
     Active Substance: SULFAMETHOXAZOLE\TRIMETHOPRIM
  9. IPRATROPIUM BROMIDE [Concomitant]
     Active Substance: IPRATROPIUM BROMIDE
  10. CLONAZEPAM [Concomitant]
     Active Substance: CLONAZEPAM
  11. SACCHAROMYCES CEREVISIAE [Concomitant]
     Active Substance: SACCHAROMYCES CEREVISIAE
  12. BUDESONIDE [Concomitant]
     Active Substance: BUDESONIDE
  13. SODIUM CHLORIDE [Concomitant]
     Active Substance: SODIUM CHLORIDE
  14. TYLENOL [Concomitant]
     Active Substance: ACETAMINOPHEN

REACTIONS (1)
  - Pyrexia [Unknown]
